FAERS Safety Report 4647333-1 (Version None)
Quarter: 2005Q2

REPORT INFORMATION
  Report Type: 
  Country: None (occurrence: None)
  Receive Date: 20050426
  Receipt Date: 20050413
  Transmission Date: 20051028
  Serious: Yes (Hospitalization)
  Sender: FDA-Public Use
  Company Number: 2005SE02267

PATIENT
  Age: 83 Year
  Sex: Female

DRUGS (6)
  1. SEROQUEL [Suspect]
     Indication: SCHIZOPHRENIA, PARANOID TYPE
     Dosage: 50 MG DAILY PO
     Route: 048
     Dates: start: 20050318, end: 20050323
  2. PAROXAT [Suspect]
     Indication: DEPRESSION
     Dosage: 20 MG DAILY PO
     Route: 048
     Dates: start: 20050318, end: 20050323
  3. RIVOTRIL [Concomitant]
  4. AKINETON [Concomitant]
  5. TRENTAL [Concomitant]
  6. TISASEN [Concomitant]

REACTIONS (1)
  - TOXIC SKIN ERUPTION [None]
